FAERS Safety Report 24119950 (Version 2)
Quarter: 2024Q3

REPORT INFORMATION
  Report Type: Report from Study
  Country: US (occurrence: US)
  Receive Date: 20240722
  Receipt Date: 20240726
  Transmission Date: 20241016
  Serious: No
  Sender: ABBVIE
  Company Number: US-ABBVIE-5843943

PATIENT
  Sex: Female

DRUGS (1)
  1. HUMIRA [Suspect]
     Active Substance: ADALIMUMAB
     Indication: Uveitis
     Route: 058
     Dates: start: 2020, end: 2021

REACTIONS (6)
  - Visual impairment [Recovering/Resolving]
  - Uveitis [Unknown]
  - Mucous membrane pemphigoid [Unknown]
  - Corneal abrasion [Unknown]
  - Eyelid scar [Unknown]
  - Eyelash changes [Unknown]
